FAERS Safety Report 4443642-X (Version None)
Quarter: 2004Q3

REPORT INFORMATION
  Report Type: 
  Country: None (occurrence: None)
  Receive Date: 20040903
  Receipt Date: 20040903
  Transmission Date: 20050211
  Serious: No
  Sender: FDA-Public Use
  Company Number: None

PATIENT
  Age: 86 Year
  Sex: Female
  Weight: 68 kg

DRUGS (1)
  1. PARLODEL [Suspect]
     Indication: LETHARGY
     Dosage: 2.5 MG EVERY 8 HO ORAL
     Route: 048
     Dates: start: 20040804, end: 20040819

REACTIONS (1)
  - HALLUCINATION [None]
